FAERS Safety Report 22061159 (Version 1)
Quarter: 2023Q1

REPORT INFORMATION
  Report Type: Spontaneous
  Country: US (occurrence: US)
  Receive Date: 20230303
  Receipt Date: 20230303
  Transmission Date: 20230418
  Serious: No
  Sender: FDA-Public Use
  Company Number: US-PFIZER INC-202300088144

PATIENT
  Age: 49 Year
  Sex: Female
  Weight: 68.04 kg

DRUGS (2)
  1. NURTEC ODT [Suspect]
     Active Substance: RIMEGEPANT SULFATE
     Indication: Headache
     Dosage: 1 DF, ALTERNATE DAY
     Route: 060
  2. TOPIRAMATE [Concomitant]
     Active Substance: TOPIRAMATE
     Dosage: 1 AT NIGHT AND 1 IN THE MORNING

REACTIONS (3)
  - Drug hypersensitivity [Unknown]
  - Acne [Unknown]
  - Off label use [Unknown]
